FAERS Safety Report 12071891 (Version 8)
Quarter: 2017Q4

REPORT INFORMATION
  Report Type: Report from Study
  Country: CA (occurrence: CA)
  Receive Date: 20160212
  Receipt Date: 20171011
  Transmission Date: 20180320
  Serious: Yes (Death, Hospitalization, Other)
  Sender: FDA-Public Use
  Company Number: CA-ROCHE-1653796

PATIENT
  Age: 72 Year
  Sex: Female

DRUGS (19)
  1. SYNTHROID [Concomitant]
     Active Substance: LEVOTHYROXINE SODIUM
  2. ACETAMINOPHEN. [Concomitant]
     Active Substance: ACETAMINOPHEN
     Indication: PREMEDICATION
     Route: 048
     Dates: start: 20151029, end: 20170426
  3. TRIAZIDE [Concomitant]
  4. RITUXAN [Suspect]
     Active Substance: RITUXIMAB
     Indication: RHEUMATOID ARTHRITIS
     Route: 042
     Dates: start: 20151029, end: 20170426
  5. SULFASALAZINE. [Concomitant]
     Active Substance: SULFASALAZINE
  6. MELOXICAM. [Concomitant]
     Active Substance: MELOXICAM
  7. AMLODIPINE [Concomitant]
     Active Substance: AMLODIPINE BESYLATE
  8. IMURAN [Concomitant]
     Active Substance: AZATHIOPRINE
  9. PREDNISONE. [Concomitant]
     Active Substance: PREDNISONE
     Dosage: FOR 6 DAYS
     Route: 065
  10. RABEPRAZOLE [Concomitant]
     Active Substance: RABEPRAZOLE
  11. DIPHENHYDRAMINE HCL [Concomitant]
     Active Substance: DIPHENHYDRAMINE HYDROCHLORIDE
     Indication: PREMEDICATION
     Route: 048
     Dates: start: 20151029, end: 20170426
  12. FISH OIL [Concomitant]
     Active Substance: FISH OIL
  13. ACTONEL [Concomitant]
     Active Substance: RISEDRONATE SODIUM
  14. PRESERVISION [Concomitant]
     Active Substance: MINERALS\VITAMINS
  15. METHYLPREDNISOLONE. [Concomitant]
     Active Substance: METHYLPREDNISOLONE
     Indication: PREMEDICATION
     Route: 042
     Dates: start: 20151029, end: 20170426
  16. PREDNISONE. [Concomitant]
     Active Substance: PREDNISONE
     Route: 065
  17. LUTEIN [Concomitant]
     Active Substance: LUTEIN
  18. ELTROXIN [Concomitant]
     Active Substance: LEVOTHYROXINE
  19. ATIVAN [Concomitant]
     Active Substance: LORAZEPAM

REACTIONS (18)
  - Pneumonia [Unknown]
  - Loss of personal independence in daily activities [Unknown]
  - Blood pressure fluctuation [Unknown]
  - Swelling [Not Recovered/Not Resolved]
  - Blood pressure diastolic increased [Unknown]
  - Peripheral swelling [Recovering/Resolving]
  - Death [Fatal]
  - Nervousness [Unknown]
  - Respiratory disorder [Unknown]
  - Heart rate irregular [Unknown]
  - Nausea [Recovering/Resolving]
  - Dyspnoea [Not Recovered/Not Resolved]
  - Arthralgia [Not Recovered/Not Resolved]
  - Joint swelling [Unknown]
  - Cardiac failure congestive [Recovered/Resolved]
  - Herpes zoster [Recovering/Resolving]
  - Fatigue [Recovering/Resolving]
  - Arthralgia [Recovering/Resolving]

NARRATIVE: CASE EVENT DATE: 20151029
